FAERS Safety Report 15097419 (Version 1)
Quarter: 2018Q3

REPORT INFORMATION
  Report Type: Spontaneous
  Country: US (occurrence: US)
  Receive Date: 20180702
  Receipt Date: 20180702
  Transmission Date: 20181010
  Serious: No
  Sender: FDA-Public Use
  Company Number: US-CELGENEUS-USA-20180608097

PATIENT
  Sex: Female

DRUGS (3)
  1. PROBIOTIC [Concomitant]
     Active Substance: PROBIOTICS NOS
     Indication: PRODUCT USED FOR UNKNOWN INDICATION
     Route: 065
  2. OTEZLA [Suspect]
     Active Substance: APREMILAST
     Indication: PSORIASIS
     Dosage: 60 MILLIGRAM
     Route: 048
     Dates: start: 20180502
  3. AMOXICILLIN. [Suspect]
     Active Substance: AMOXICILLIN
     Indication: DIZZINESS
     Dosage: 1500 MILLIGRAM
     Route: 065
     Dates: start: 2018

REACTIONS (3)
  - Visual impairment [Unknown]
  - Drug intolerance [Unknown]
  - Dizziness [Unknown]

NARRATIVE: CASE EVENT DATE: 2018
